FAERS Safety Report 10771160 (Version 2)
Quarter: 2015Q1

REPORT INFORMATION
  Report Type: Spontaneous
  Country: US (occurrence: US)
  Receive Date: 20150206
  Receipt Date: 20150319
  Transmission Date: 20150721
  Serious: Yes (Other)
  Sender: FDA-Public Use
  Company Number: US-BAYER-2015-012614

PATIENT
  Age: 79 Year
  Sex: Male
  Weight: 84 kg

DRUGS (6)
  1. LISINOPRIL. [Interacting]
     Active Substance: LISINOPRIL
  2. ASPIRIN. [Concomitant]
     Active Substance: ASPIRIN
  3. ATENOLOL. [Concomitant]
     Active Substance: ATENOLOL
     Dosage: 50 UNK, UNK
  4. ALKA-SELTZER PLUS MAX COUGH, MUCUS AND CONGESTION [Suspect]
     Active Substance: DEXTROMETHORPHAN HYDROBROMIDE\GUAIFENESIN
     Indication: NASOPHARYNGITIS
     Dosage: UNK
     Dates: start: 20150123, end: 20150124
  5. LIPITOR [Concomitant]
     Active Substance: ATORVASTATIN CALCIUM
     Dosage: UNK MG, UNK
  6. NORVASC [Concomitant]
     Active Substance: AMLODIPINE BESYLATE
     Dosage: UNK MG, UNK

REACTIONS (6)
  - Mass [Recovered/Resolved]
  - Lip swelling [Recovered/Resolved]
  - Swelling face [Recovered/Resolved]
  - Drug interaction [Recovered/Resolved]
  - Lip swelling [Recovered/Resolved]
  - Bone swelling [Recovered/Resolved]

NARRATIVE: CASE EVENT DATE: 20150124
